FAERS Safety Report 4625493-6 (Version None)
Quarter: 2005Q2

REPORT INFORMATION
  Report Type: 
  Country: None (occurrence: None)
  Receive Date: 20050325
  Receipt Date: 20050117
  Transmission Date: 20051028
  Serious: No
  Sender: FDA-Public Use
  Company Number: USA050188467

PATIENT
  Age: 82 Year
  Sex: Female
  Weight: 47 kg

DRUGS (4)
  1. FORTEO [Suspect]
     Indication: OSTEOPOROSIS
     Dosage: 20 UG/ 1 DAY
     Dates: start: 20050105
  2. ALDORIL 15 [Concomitant]
  3. ALDOMET (METHYLODOPA) [Concomitant]
  4. XALATAN [Concomitant]

REACTIONS (3)
  - BACK PAIN [None]
  - KYPHOSIS [None]
  - NERVOUSNESS [None]
